FAERS Safety Report 16702772 (Version 2)
Quarter: 2019Q3

REPORT INFORMATION
  Report Type: Report from Study
  Country: AU (occurrence: AU)
  Receive Date: 20190814
  Receipt Date: 20190903
  Transmission Date: 20191004
  Serious: Yes (Other)
  Sender: FDA-Public Use
  Company Number: AU-SHIRE-AU201805560

PATIENT

DRUGS (5)
  1. ELAPRASE [Suspect]
     Active Substance: IDURSULFASE
     Dosage: 24 MG, 1X/WEEK
     Route: 041
  2. ELAPRASE [Suspect]
     Active Substance: IDURSULFASE
     Dosage: 0.6 MG/KG, 1X/WEEK
     Route: 041
     Dates: start: 20190321
  3. ELAPRASE [Suspect]
     Active Substance: IDURSULFASE
     Indication: MUCOPOLYSACCHARIDOSIS II
     Dosage: 24 MG, 1X/WEEK
     Route: 041
     Dates: start: 20110323
  4. ELAPRASE [Suspect]
     Active Substance: IDURSULFASE
     Dosage: 24 MG, 1X/WEEK
     Route: 041
     Dates: start: 20110323
  5. ELAPRASE [Suspect]
     Active Substance: IDURSULFASE
     Dosage: 24 MG, 1X/WEEK
     Route: 042
     Dates: start: 20180705

REACTIONS (5)
  - Blood pressure decreased [Unknown]
  - Varicella [Recovered/Resolved]
  - Blood pressure increased [Unknown]
  - Blood pressure abnormal [Unknown]
  - Off label use [Unknown]

NARRATIVE: CASE EVENT DATE: 20180201
